FAERS Safety Report 4468159-8 (Version None)
Quarter: 2004Q4

REPORT INFORMATION
  Report Type: 
  Country: None (occurrence: None)
  Receive Date: 20041001
  Receipt Date: 20040916
  Transmission Date: 20050328
  Serious: Yes (Life-Threatening, Other)
  Sender: FDA-Public Use
  Company Number: C2003-1822.01

PATIENT
  Age: 14 Year
  Sex: Male

DRUGS (7)
  1. CYSTAGON [Suspect]
     Indication: CYSTINOSIS
     Dosage: 2600MG/DAY ORAL, AGE 10 MONTHS-ONGOING
     Route: 048
  2. CYSTEAMINE EYE DROPS SIGMA TAU [Suspect]
     Dosage: AGE 1-ONGOING
  3. POLYCITRA [Concomitant]
  4. NEUTRAPHOS [Concomitant]
  5. CARNITINE [Concomitant]
  6. CLINDAMYCIN [Concomitant]
  7. CEPHALEXIN [Concomitant]

REACTIONS (5)
  - ABDOMINAL PAIN UPPER [None]
  - BENIGN INTRACRANIAL HYPERTENSION [None]
  - FATIGUE [None]
  - PAPILLOEDEMA [None]
  - RASH [None]
